FAERS Safety Report 5203743-5 (Version None)
Quarter: 2007Q1

REPORT INFORMATION
  Report Type: 
  Country: None (occurrence: None)
  Receive Date: 20070110
  Receipt Date: 20061229
  Transmission Date: 20070707
  Serious: Yes (Congenital Anomaly, Other)
  Sender: FDA-Public Use
  Company Number: DE-GILEAD-2007-0010924

PATIENT
  Sex: Male
  Weight: 2.78 kg

DRUGS (1)
  1. VIREAD [Suspect]
     Route: 064

REACTIONS (3)
  - DIAPHRAGMATIC HERNIA [None]
  - DRUG EXPOSURE DURING PREGNANCY [None]
  - PREMATURE BABY [None]
